FAERS Safety Report 15728659 (Version 8)
Quarter: 2023Q1

REPORT INFORMATION
  Report Type: Report from Study
  Country: CH (occurrence: CH)
  Receive Date: 20181217
  Receipt Date: 20230306
  Transmission Date: 20230417
  Serious: Yes (Death, Hospitalization)
  Sender: FDA-Public Use
  Company Number: PHHO2018CH013154

PATIENT
  Age: 39 Year
  Sex: Male

DRUGS (4)
  1. LACNOTUZUMAB [Suspect]
     Active Substance: LACNOTUZUMAB
     Indication: Neoplasm malignant
     Dosage: 803 MG, Q3W
     Route: 042
     Dates: start: 20180719, end: 20180814
  2. SPARTALIZUMAB [Suspect]
     Active Substance: SPARTALIZUMAB
     Indication: Neoplasm malignant
     Dosage: 300 MG, Q3W
     Route: 042
     Dates: start: 20180719, end: 20180814
  3. TAFINLAR [Suspect]
     Active Substance: DABRAFENIB MESYLATE
     Indication: Neoplasm malignant
     Dosage: 150 MG, BID
     Route: 048
     Dates: start: 20181101, end: 20181211
  4. MEKINIST [Suspect]
     Active Substance: TRAMETINIB DIMETHYL SULFOXIDE
     Indication: Neoplasm malignant
     Dosage: 5 MG, QD
     Route: 048
     Dates: start: 20181101, end: 20181211

REACTIONS (2)
  - General physical health deterioration [Recovered/Resolved]
  - Disease progression [Fatal]

NARRATIVE: CASE EVENT DATE: 20181211
